FAERS Safety Report 6132756-4 (Version None)
Quarter: 2009Q1

REPORT INFORMATION
  Report Type: 
  Country: None (occurrence: None)
  Receive Date: 20090326
  Receipt Date: 20090320
  Transmission Date: 20090719
  Serious: Yes (Life-Threatening, Disabling)
  Sender: FDA-Public Use
  Company Number: GB-WYE-G03363209

PATIENT
  Age: 55 Year
  Sex: Female
  Weight: 60 kg

DRUGS (5)
  1. EFFEXOR [Suspect]
     Indication: ANXIETY
     Route: 048
     Dates: start: 20020101
  2. EFFEXOR [Suspect]
     Indication: DEPRESSION
  3. DIAZEPAM [Concomitant]
     Indication: ANXIETY
     Dosage: 5MG, AS NECESSARY
     Route: 048
     Dates: start: 20020101
  4. ZOPICLONE [Concomitant]
     Indication: INSOMNIA
     Dosage: 7.5MG, FREQUENCY UNSPECIFED
     Route: 048
  5. ACETAMINOPHEN W/ CODEINE [Concomitant]
     Dosage: DOSAGE UNSPECIFIED, 4 IN 1 DAY
     Route: 048
     Dates: start: 20080301

REACTIONS (1)
  - LEFT VENTRICULAR FAILURE [None]
